FAERS Safety Report 6915271-7 (Version None)
Quarter: 2010Q3

REPORT INFORMATION
  Report Type: 
  Country: None (occurrence: None)
  Receive Date: 20100809
  Receipt Date: 20090918
  Transmission Date: 20110219
  Serious: No
  Sender: FDA-Public Use
  Company Number: US-ABBOTT-07P-163-0363717-00

PATIENT
  Sex: Female
  Weight: 67.192 kg

DRUGS (7)
  1. DEPAKOTE ER [Suspect]
     Indication: EPILEPSY
     Dosage: 1 TABLET IN AM AND 2 TABLETS IN PM
     Route: 048
  2. DEPAKOTE ER [Suspect]
     Dosage: TITRATED OFF
     Dates: end: 20070511
  3. DEPAKOTE [Suspect]
     Indication: EPILEPSY
     Dosage: NOT REPORTED
  4. TEGRETOL-XR [Concomitant]
     Indication: EPILEPSY
     Route: 048
     Dates: start: 20070401
  5. FLU [Concomitant]
     Indication: PRODUCT USED FOR UNKNOWN INDICATION
     Route: 030
     Dates: start: 20061025, end: 20061025
  6. LORAZEPAM [Concomitant]
     Indication: PRODUCT USED FOR UNKNOWN INDICATION
  7. LORATADINE [Concomitant]
     Indication: HYPERSENSITIVITY

REACTIONS (22)
  - ALANINE AMINOTRANSFERASE INCREASED [None]
  - ASPARTATE AMINOTRANSFERASE INCREASED [None]
  - CHEST DISCOMFORT [None]
  - CONTUSION [None]
  - DRY SKIN [None]
  - DYSSTASIA [None]
  - EXCORIATION [None]
  - FATIGUE [None]
  - FEELING HOT [None]
  - GRAND MAL CONVULSION [None]
  - HEADACHE [None]
  - JOINT SWELLING [None]
  - NASOPHARYNGITIS [None]
  - OEDEMA PERIPHERAL [None]
  - PAIN [None]
  - PERIPHERAL COLDNESS [None]
  - RASH [None]
  - SKIN LESION [None]
  - TELANGIECTASIA [None]
  - TINNITUS [None]
  - TOOTH FRACTURE [None]
  - WOUND SECRETION [None]
